FAERS Safety Report 12589998 (Version 1)
Quarter: 2016Q3

REPORT INFORMATION
  Report Type: Spontaneous
  Country: SE (occurrence: SE)
  Receive Date: 20160725
  Receipt Date: 20160725
  Transmission Date: 20161109
  Serious: Yes (Disabling)
  Sender: FDA-Public Use
  Company Number: SE-BRISTOL-MYERS SQUIBB COMPANY-BMS-2016-044805

PATIENT
  Age: 30 Year
  Sex: Male

DRUGS (8)
  1. PROPAVAN [Concomitant]
     Active Substance: PROPIOMAZINE
     Indication: INSOMNIA
     Dosage: 25 MG, UNK
     Route: 065
     Dates: start: 20160421
  2. VALDOXAN [Concomitant]
     Active Substance: AGOMELATINE
     Indication: DEPRESSION
     Dosage: 25 MG, UNK
     Route: 065
     Dates: start: 20160427, end: 20160427
  3. ZOPIKLON [Concomitant]
     Active Substance: ZOPICLONE
     Indication: INSOMNIA
     Dosage: 7.5 MG, UNK
     Route: 065
     Dates: start: 20160530
  4. ABILIFY [Suspect]
     Active Substance: ARIPIPRAZOLE
     Indication: PSYCHOTIC DISORDER
     Dosage: 20 MG, QD
     Route: 048
     Dates: start: 20160324, end: 20160406
  5. NOZINAN                            /00038601/ [Concomitant]
     Active Substance: LEVOMEPROMAZINE
     Indication: INSOMNIA
     Dosage: 50 MG, UNK
     Route: 065
     Dates: start: 20160531
  6. VALDOXAN [Concomitant]
     Active Substance: AGOMELATINE
     Indication: ANXIETY
  7. ABILIFY MAINTENA [Suspect]
     Active Substance: ARIPIPRAZOLE
     Indication: PSYCHOTIC DISORDER
     Dosage: 400 MG, UNK
     Route: 065
     Dates: start: 20160414, end: 20160609
  8. BEVIPLEX                           /00322001/ [Concomitant]
     Indication: VITAMIN B COMPLEX DEFICIENCY
     Dosage: UNK
     Route: 065
     Dates: start: 20160324

REACTIONS (4)
  - Product use issue [Unknown]
  - Sleep disorder [Not Recovered/Not Resolved]
  - Adverse event [Unknown]
  - Tremor [Not Recovered/Not Resolved]

NARRATIVE: CASE EVENT DATE: 20160526
